FAERS Safety Report 5287967-7 (Version None)
Quarter: 2007Q2

REPORT INFORMATION
  Report Type: 
  Country: None (occurrence: None)
  Receive Date: 20070405
  Receipt Date: 20070330
  Transmission Date: 20071010
  Serious: Yes (Other)
  Sender: FDA-Public Use
  Company Number: JP-BRACCO-BRO-011594

PATIENT
  Age: 56 Year
  Sex: Male

DRUGS (1)
  1. IOPAMIRON [Suspect]
     Route: 050
     Dates: start: 20070313, end: 20070313

REACTIONS (6)
  - CATARACT [None]
  - DIABETIC RETINOPATHY [None]
  - OPTIC ISCHAEMIC NEUROPATHY [None]
  - PAPILLOEDEMA [None]
  - VISION BLURRED [None]
  - VISUAL ACUITY REDUCED [None]
